FAERS Safety Report 9337499 (Version 1)
Quarter: 2013Q2

REPORT INFORMATION
  Report Type: Spontaneous
  Country: US (occurrence: US)
  Receive Date: 20130607
  Receipt Date: 20130607
  Transmission Date: 20140414
  Serious: Yes (Hospitalization)
  Sender: FDA-Public Use
  Company Number: US-LUNDBECK-DKLU1091513

PATIENT
  Sex: Female

DRUGS (16)
  1. SABRIL (FOR ORAL SOLUTION) [Suspect]
     Indication: PRODUCT USED FOR UNKNOWN INDICATION
     Route: 048
  2. BACLOFEN [Concomitant]
     Indication: PRODUCT USED FOR UNKNOWN INDICATION
     Dosage: 1/2 TABLET
     Route: 048
  3. DDAVP [Concomitant]
     Route: 048
  4. DDAVP [Concomitant]
     Route: 048
  5. NORDITROPIN [Concomitant]
     Indication: PRODUCT USED FOR UNKNOWN INDICATION
     Route: 050
  6. MIRALAX [Concomitant]
     Indication: CONSTIPATION
     Dosage: 1 SCOOP
     Route: 048
  7. MOTRIN [Concomitant]
     Indication: PAIN
     Route: 048
  8. POLY-VI-SOL [Concomitant]
     Indication: PRODUCT USED FOR UNKNOWN INDICATION
     Route: 048
  9. PREVACID [Concomitant]
     Indication: PRODUCT USED FOR UNKNOWN INDICATION
     Route: 048
  10. SYNTHROID [Concomitant]
     Indication: PRODUCT USED FOR UNKNOWN INDICATION
     Route: 048
  11. TOPAMAX [Concomitant]
     Indication: PRODUCT USED FOR UNKNOWN INDICATION
     Route: 048
  12. TOPAMAX [Concomitant]
     Route: 048
  13. TYLENOL [Concomitant]
     Indication: PAIN
     Route: 048
  14. TYLENOL [Concomitant]
     Indication: PYREXIA
  15. CORTEF [Concomitant]
     Indication: PRODUCT USED FOR UNKNOWN INDICATION
     Route: 048
  16. CORTEF [Concomitant]
     Route: 048

REACTIONS (1)
  - Hyperkalaemia [Recovered/Resolved]
